FAERS Safety Report 8784614 (Version 4)
Quarter: 2013Q1

REPORT INFORMATION
  Report Type: Spontaneous
  Country: US (occurrence: None)
  Receive Date: 20120827
  Receipt Date: 20121015
  Transmission Date: 20140127
  Serious: Yes (Hospitalization, Other)
  Sender: FDA-Public Use
  Company Number: US-JNJFOC-20120810610

PATIENT
  Age: 62 Year
  Sex: Male
  Weight: 108 kg

DRUGS (2)
  1. DECITABINE [Suspect]
     Indication: ACUTE MYELOID LEUKAEMIA
     Route: 042
     Dates: start: 20120518
  2. BORTEZOMIB [Suspect]
     Indication: ACUTE MYELOID LEUKAEMIA
     Route: 058
     Dates: start: 20120518

REACTIONS (11)
  - Left ventricular dysfunction [None]
  - Hypotension [None]
  - Hypervolaemia [None]
  - Febrile neutropenia [None]
  - Cardiac failure congestive [None]
  - Pulmonary oedema [None]
  - Ejection fraction decreased [None]
  - Chest discomfort [None]
  - Dyspnoea [None]
  - Tachycardia [None]
  - Embolism [None]
